FAERS Safety Report 13844599 (Version 2)
Quarter: 2017Q3

REPORT INFORMATION
  Report Type: Spontaneous
  Country: US (occurrence: US)
  Receive Date: 20170808
  Receipt Date: 20170830
  Transmission Date: 20171127
  Serious: Yes (Other)
  Sender: FDA-Public Use
  Company Number: US-CLOVIS ONCOLOGY-CLO-2017-000665

PATIENT
  Age: 52 Year
  Sex: Female

DRUGS (2)
  1. RUBRACA [Suspect]
     Active Substance: RUCAPARIB CAMSYLATE
     Indication: BREAST CANCER
     Dosage: 300 MG, BID
     Route: 048
     Dates: start: 20170624, end: 201708
  2. RUBRACA [Suspect]
     Active Substance: RUCAPARIB CAMSYLATE
     Indication: OVARIAN CANCER
     Dosage: 600 MG, BID
     Route: 048
     Dates: start: 201708

REACTIONS (12)
  - Vision blurred [Unknown]
  - Blood pressure increased [Unknown]
  - Dysgeusia [Unknown]
  - Syncope [Unknown]
  - Off label use [Unknown]
  - Pain in extremity [Unknown]
  - Underdose [Unknown]
  - Pharyngitis streptococcal [Unknown]
  - Prescribed underdose [Unknown]
  - Lower respiratory tract infection [Unknown]
  - Constipation [Unknown]
  - Drug dose omission [Unknown]

NARRATIVE: CASE EVENT DATE: 2017
